FAERS Safety Report 8018292-9 (Version None)
Quarter: 2012Q1

REPORT INFORMATION
  Report Type: 
  Country: None (occurrence: None)
  Receive Date: 20120103
  Receipt Date: 20111222
  Transmission Date: 20120608
  Serious: Yes (Hospitalization, Disabling, Other)
  Sender: FDA-Public Use
  Company Number: US-BAYER-2011-064238

PATIENT
  Age: 48 Year
  Sex: Female
  Weight: 55.8 kg

DRUGS (16)
  1. LEVAQUIN [Concomitant]
     Indication: URINARY TRACT INFECTION
     Dosage: 500 MG, QD
     Route: 048
  2. CETIRIZINE [Concomitant]
     Dosage: 10 MG, BID
     Route: 048
  3. CIPROFLOXACIN [Concomitant]
     Dosage: 500 MG, BID
     Route: 048
  4. OXYCODONE HCL [Concomitant]
  5. YASMIN [Suspect]
     Indication: CONTRACEPTION
     Dosage: UNK
     Route: 048
     Dates: start: 20050501, end: 20070201
  6. MINOCYCLINE HCL [Concomitant]
     Indication: ROSACEA
     Dosage: 100 MG, BID
     Route: 048
  7. TRAMADOL HCL [Concomitant]
     Indication: PAIN
     Dosage: 50 MG, PRN
     Route: 048
  8. TRAZODONE HCL [Concomitant]
     Dosage: 50 MG, HS
     Route: 048
  9. AMBIEN [Concomitant]
  10. CELECOXIB [Concomitant]
     Dosage: 200 MG, QD
     Route: 048
  11. OMEPRAZOLE [Concomitant]
     Dosage: 20 MG, QD
     Route: 048
  12. METRONIDAZOLE [Concomitant]
     Dosage: UNK UNK, BID
     Route: 061
  13. MODAFINIL [Concomitant]
     Indication: ROSACEA
     Dosage: 200 MG, UNK
     Route: 048
  14. NITROFURANTOIN [Concomitant]
     Dosage: 50 MG, UNK
     Route: 048
  15. GABAPENTIN [Concomitant]
     Indication: PAIN
     Dosage: 100 MG, TID
     Route: 048
  16. CELEBREX [Concomitant]

REACTIONS (8)
  - VISUAL IMPAIRMENT [None]
  - PULMONARY EMBOLISM [None]
  - DEEP VEIN THROMBOSIS [None]
  - APHASIA [None]
  - COGNITIVE DISORDER [None]
  - TRANSIENT ISCHAEMIC ATTACK [None]
  - CEREBROVASCULAR ACCIDENT [None]
  - PAIN [None]
